FAERS Safety Report 25090797 (Version 4)
Quarter: 2025Q2

REPORT INFORMATION
  Report Type: Spontaneous
  Country: US (occurrence: US)
  Receive Date: 20250318
  Receipt Date: 20250512
  Transmission Date: 20250717
  Serious: No
  Sender: PFIZER
  Company Number: US-PFIZER INC-202500055686

PATIENT
  Age: 20 Year
  Sex: Female
  Weight: 72.57 kg

DRUGS (1)
  1. DEPO-PROVERA [Suspect]
     Active Substance: MEDROXYPROGESTERONE ACETATE

REACTIONS (4)
  - Injection site haemorrhage [Unknown]
  - Device occlusion [Unknown]
  - Device delivery system issue [Unknown]
  - Product administration error [Unknown]
